FAERS Safety Report 24758484 (Version 3)
Quarter: 2025Q4

REPORT INFORMATION
  Report Type: Spontaneous
  Country: US (occurrence: None)
  Receive Date: 20241220
  Receipt Date: 20251030
  Transmission Date: 20260118
  Serious: No
  Sender: UCB
  Company Number: US-UCBSA-2024048903

PATIENT
  Age: 59 Year
  Weight: 77.098 kg

DRUGS (3)
  1. BIMZELX [Suspect]
     Active Substance: BIMEKIZUMAB-BKZX
     Indication: Psoriasis
     Dosage: 320 MILLIGRAM
  2. BIMZELX [Suspect]
     Active Substance: BIMEKIZUMAB-BKZX
     Dosage: 320 MILLIGRAM, EV 4 WEEKS
  3. BIMZELX [Suspect]
     Active Substance: BIMEKIZUMAB-BKZX
     Dosage: 320 MILLIGRAM, WEEK 16 AND EVERY 8 WEEKS

REACTIONS (6)
  - Psoriasis [Not Recovered/Not Resolved]
  - Feeling abnormal [Unknown]
  - Incorrect dose administered [Unknown]
  - Syringe issue [Unknown]
  - Needle issue [Unknown]
  - Product dose omission issue [Unknown]
